FAERS Safety Report 9424681 (Version 3)
Quarter: 2014Q2

REPORT INFORMATION
  Report Type: Spontaneous
  Country: US (occurrence: None)
  Receive Date: 20130725
  Receipt Date: 20140521
  Transmission Date: 20141212
  Serious: Yes (Hospitalization, Other)
  Sender: FDA-Public Use
  Company Number: JPI-P-033881

PATIENT
  Age: 55 Year
  Sex: Male

DRUGS (4)
  1. XYREM [Suspect]
     Indication: HYPERSOMNIA
     Dosage: 6GM (3GM, 2 IN 1D) ORAL
     Route: 048
     Dates: start: 200402
  2. DOXEPIN HCL (DOXEPIN HYDROCHLORIDE) [Suspect]
     Indication: SLEEP DISORDER
  3. ANTIDEPRESSANTS [Concomitant]
  4. ANTIHYPERTENSIVES [Concomitant]

REACTIONS (10)
  - Spinal fusion surgery [None]
  - Post procedural infection [None]
  - Removal of internal fixation [None]
  - Staphylococcal infection [None]
  - Intervertebral disc protrusion [None]
  - Weight increased [None]
  - Fatigue [None]
  - Incorrect dose administered [None]
  - Off label use [None]
  - Staphylococcal infection [None]
